FAERS Safety Report 21986253 (Version 3)
Quarter: 2023Q2

REPORT INFORMATION
  Report Type: Report from Study
  Country: CH (occurrence: CH)
  Receive Date: 20230213
  Receipt Date: 20230516
  Transmission Date: 20230722
  Serious: Yes (Hospitalization)
  Sender: FDA-Public Use
  Company Number: CH-JNJFOC-20230207407

PATIENT
  Age: 58 Year
  Sex: Male
  Weight: 83 kg

DRUGS (6)
  1. TECLISTAMAB [Suspect]
     Active Substance: TECLISTAMAB
     Indication: Plasma cell myeloma
     Dosage: 09-AUG-2022, 16-AUG-2022, 23-AUG-2022, 06-SEP-2022, 13-SEP-2022, 20-SEP-2022, 04-OCT-2022, 11-OCT-20
     Route: 058
     Dates: start: 20220407, end: 20221222
  2. TECLISTAMAB [Suspect]
     Active Substance: TECLISTAMAB
     Route: 058
     Dates: start: 20230221
  3. FAMCICLOVIR [Concomitant]
     Active Substance: FAMCICLOVIR
     Route: 048
     Dates: start: 2017
  4. CALCIUM\CHOLECALCIFEROL [Concomitant]
     Active Substance: CALCIUM\CHOLECALCIFEROL
     Indication: Osteopenia
     Dosage: 1000/800
     Dates: start: 2017
  5. OXYCODONE [Concomitant]
     Active Substance: OXYCODONE
     Indication: Pain
     Route: 065
  6. OXYCONTIN [Concomitant]
     Active Substance: OXYCODONE HYDROCHLORIDE
     Indication: Pain
     Dosage: MAXIMUM 6 TIMES A DAY
     Route: 065

REACTIONS (2)
  - Febrile neutropenia [Recovered/Resolved]
  - Cholecystitis acute [Recovered/Resolved]

NARRATIVE: CASE EVENT DATE: 20221226
